FAERS Safety Report 6990758-X (Version None)
Quarter: 2010Q3

REPORT INFORMATION
  Report Type: 
  Country: None (occurrence: None)
  Receive Date: 20100916
  Receipt Date: 20090806
  Transmission Date: 20110219
  Serious: No
  Sender: FDA-Public Use
  Company Number: HQWYE642217JAN07

PATIENT
  Sex: Female

DRUGS (2)
  1. PREMARIN [Suspect]
     Indication: HYSTERECTOMY
     Route: 048
     Dates: start: 19620101
  2. LEVOXYL [Concomitant]

REACTIONS (4)
  - PRODUCT QUALITY ISSUE [None]
  - RASH [None]
  - RASH ERYTHEMATOUS [None]
  - RASH PRURITIC [None]
